APPROVED DRUG PRODUCT: SELENIOUS ACID
Active Ingredient: SELENIOUS ACID
Strength: EQ 600MCG SELENIUM/10ML (EQ 60MCG SELENIUM/ML)
Dosage Form/Route: SOLUTION;INTRAVENOUS
Application: A218779 | Product #001
Applicant: FRESENIUS KABI USA LLC
Approved: Feb 10, 2025 | RLD: No | RS: No | Type: DISCN